FAERS Safety Report 18696293 (Version 1)
Quarter: 2021Q1

REPORT INFORMATION
  Report Type: Spontaneous
  Country: CN (occurrence: CN)
  Receive Date: 20210104
  Receipt Date: 20210104
  Transmission Date: 20210419
  Serious: Yes (Other)
  Sender: FDA-Public Use
  Company Number: CN-PFIZER INC-2020514454

PATIENT
  Age: 7 Year
  Sex: Female
  Weight: 10 kg

DRUGS (1)
  1. METHOTREXATE. [Suspect]
     Active Substance: METHOTREXATE
     Indication: ACUTE LEUKAEMIA
     Dosage: 1 G, 1X/DAY
     Route: 041
     Dates: start: 20201116, end: 20201116

REACTIONS (4)
  - Neutropenia [Recovered/Resolved]
  - Granulocyte count decreased [Recovered/Resolved]
  - Pyrexia [Recovered/Resolved]
  - Rhinorrhoea [Unknown]

NARRATIVE: CASE EVENT DATE: 20201127
